FAERS Safety Report 21768400 (Version 1)
Quarter: 2022Q4

REPORT INFORMATION
  Report Type: Spontaneous
  Country: US (occurrence: US)
  Receive Date: 20221222
  Receipt Date: 20221222
  Transmission Date: 20230113
  Serious: No
  Sender: FDA-Public Use
  Company Number: US-ALKERMES INC.-ALK-2022-006096

PATIENT
  Sex: Male

DRUGS (2)
  1. VIVITROL [Suspect]
     Active Substance: NALTREXONE
     Indication: Alcoholism
     Dosage: 380 MILLIGRAM, QMO
     Route: 030
     Dates: start: 20221202
  2. INTERFERON [Concomitant]
     Active Substance: INTERFERON
     Indication: Hepatitis C
     Dosage: UNK
     Route: 065

REACTIONS (2)
  - Hepatitis C [Unknown]
  - Contraindicated product administered [Unknown]
